FAERS Safety Report 9363410 (Version 2)
Quarter: 2013Q3

REPORT INFORMATION
  Report Type: Spontaneous
  Country: US (occurrence: US)
  Receive Date: 20130624
  Receipt Date: 20130730
  Transmission Date: 20140515
  Serious: Yes (Other)
  Sender: FDA-Public Use
  Company Number: US-BAYER-2013-074670

PATIENT
  Age: 25 Year
  Sex: Female
  Weight: 63 kg

DRUGS (1)
  1. MIRENA [Suspect]
     Indication: CONTRACEPTION
     Dosage: 20 MCG/24HR, CONT
     Route: 015
     Dates: start: 20110131, end: 20130614

REACTIONS (12)
  - Device difficult to use [None]
  - Post procedural discharge [None]
  - Embedded device [None]
  - Embedded device [None]
  - Device breakage [None]
  - Device breakage [None]
  - Procedural pain [None]
  - Genital haemorrhage [None]
  - Weight increased [None]
  - Dysmenorrhoea [None]
  - Abdominal pain upper [None]
  - Genital haemorrhage [None]
